FAERS Safety Report 16343658 (Version 16)
Quarter: 2019Q4

REPORT INFORMATION
  Report Type: Spontaneous
  Country: US (occurrence: US)
  Receive Date: 20190522
  Receipt Date: 20191009
  Transmission Date: 20200122
  Serious: No
  Sender: FDA-Public Use
  Company Number: US-PFIZER INC-2019214888

PATIENT
  Age: 73 Year
  Sex: Male

DRUGS (1)
  1. XELJANZ [Suspect]
     Active Substance: TOFACITINIB CITRATE
     Dosage: 5 MG, UNK
     Dates: start: 201904, end: 2019

REACTIONS (10)
  - Fatigue [Recovering/Resolving]
  - Discomfort [Not Recovered/Not Resolved]
  - Infection [Unknown]
  - Cough [Unknown]
  - Depression [Unknown]
  - Feeling abnormal [Unknown]
  - Sneezing [Unknown]
  - Nasal congestion [Unknown]
  - Condition aggravated [Not Recovered/Not Resolved]
  - Malaise [Unknown]

NARRATIVE: CASE EVENT DATE: 2019
